FAERS Safety Report 6810260-5 (Version None)
Quarter: 2010Q2

REPORT INFORMATION
  Report Type: 
  Country: None (occurrence: None)
  Receive Date: 20100630
  Receipt Date: 20100618
  Transmission Date: 20101027
  Serious: Yes (Death, Hospitalization, Other)
  Sender: FDA-Public Use
  Company Number: IN-BRISTOL-MYERS SQUIBB COMPANY-14793806

PATIENT
  Age: 65 Year
  Sex: Male

DRUGS (11)
  1. APIXABAN [Suspect]
     Indication: THROMBOSIS PROPHYLAXIS
     Route: 048
     Dates: start: 20090313, end: 20090927
  2. WARFARIN SODIUM [Suspect]
     Indication: THROMBOSIS PROPHYLAXIS
     Dosage: INTERRUPTED ON 29MAR09
     Route: 048
     Dates: start: 20090313, end: 20090929
  3. PLACEBO [Suspect]
     Indication: THROMBOSIS PROPHYLAXIS
     Dosage: STOPPED ON 27SEP09 IN APIX ARM STOPPED ON 29SEP09 IN WARF ARM
     Route: 048
     Dates: start: 20090313, end: 20090929
  4. DIGOXIN TABS [Concomitant]
     Dates: start: 20051001, end: 20091218
  5. RAMIPRIL [Concomitant]
     Dosage: TABS
     Dates: start: 20051001, end: 20091218
  6. METOPROLOL [Concomitant]
     Dosage: TABS
     Dates: start: 20051001, end: 20091218
  7. LASIX [Concomitant]
     Dosage: TABS
     Dates: start: 20051001, end: 20091218
  8. RANOLAZINE HCL [Concomitant]
     Dosage: TABS
     Dates: start: 20051001
  9. ALDOSTERONE [Concomitant]
     Dosage: TABS
     Dates: start: 20051001, end: 20090924
  10. ATORVASTATIN [Concomitant]
     Dosage: TABS
     Dates: start: 20051001, end: 20091218
  11. ALDACTONE [Concomitant]
     Dates: start: 20051001, end: 20090924

REACTIONS (3)
  - CARDIAC ARREST [None]
  - ISCHAEMIC STROKE [None]
  - TUBULOINTERSTITIAL NEPHRITIS [None]
